FAERS Safety Report 13545180 (Version 1)
Quarter: 2017Q2

REPORT INFORMATION
  Report Type: Spontaneous
  Country: US (occurrence: US)
  Receive Date: 20170515
  Receipt Date: 20170515
  Transmission Date: 20170830
  Serious: No
  Sender: FDA-Public Use
  Company Number: None

PATIENT
  Age: 59 Year
  Sex: Female
  Weight: 60.38 kg

DRUGS (1)
  1. ZOLPIDEM TARTRATE EXTENDED RELEASE [Suspect]
     Active Substance: ZOLPIDEM TARTRATE
     Indication: INSOMNIA
     Route: 048
     Dates: start: 20120501, end: 20170405

REACTIONS (4)
  - Memory impairment [None]
  - Somnambulism [None]
  - Anxiety [None]
  - Fear [None]

NARRATIVE: CASE EVENT DATE: 20170405
